FAERS Safety Report 19109752 (Version 2)
Quarter: 2024Q1

REPORT INFORMATION
  Report Type: Spontaneous
  Country: CZ (occurrence: CZ)
  Receive Date: 20210409
  Receipt Date: 20240312
  Transmission Date: 20240410
  Serious: Yes (Other)
  Sender: FDA-Public Use
  Company Number: CZ-CELLTRION INC.-2021CZ004303

PATIENT

DRUGS (12)
  1. RITUXIMAB [Suspect]
     Active Substance: RITUXIMAB
     Indication: Chronic lymphocytic leukaemia
     Dosage: UNK, QCY, DID NOT ALLOW CONTINUATION OF CHEMOIMMUNOTHERAPY AFTER THE 5TH CYCLE / DISCONTINUED PREMAT
     Route: 065
     Dates: start: 20081101
  2. RITUXIMAB [Suspect]
     Active Substance: RITUXIMAB
     Dosage: UNK, QCY, DID NOT ALLOW CONTINUATION OF CHEMOIMMUNOTHERAPY AFTER THE 5TH CYCLE / DISCONTINUED PREMAT
     Route: 065
     Dates: start: 201402
  3. RITUXIMAB [Suspect]
     Active Substance: RITUXIMAB
     Dosage: 5 CYCLES, FCR REGIMEN
     Route: 065
     Dates: start: 2008
  4. CYCLOPHOSPHAMIDE [Suspect]
     Active Substance: CYCLOPHOSPHAMIDE
     Indication: Chronic lymphocytic leukaemia
     Dosage: CHEMOIMMUNOTHERAPY, DISCONTINUED PREMATURELY AFTER THE 5TH CYCLE
     Route: 065
     Dates: start: 20081101
  5. CYCLOPHOSPHAMIDE [Suspect]
     Active Substance: CYCLOPHOSPHAMIDE
     Dosage: UNK, QCY, DID NOT ALLOW CONTINUATION OF CHEMOIMMUNOTHERAPY AFTER THE 5TH CYCLE / DISCONTINUED PREMAT
     Route: 065
     Dates: start: 201402
  6. CYCLOPHOSPHAMIDE [Suspect]
     Active Substance: CYCLOPHOSPHAMIDE
     Dosage: 5 CYCLES, FCR REGIMEN
     Route: 065
     Dates: start: 200811
  7. FLUDARABINE [Suspect]
     Active Substance: FLUDARABINE PHOSPHATE
     Indication: Chronic lymphocytic leukaemia
     Dosage: CHEMOIMMUNOTHERAPY, DISCONTINUED PREMATURELY AFTER THE 5TH CYCLE
     Route: 065
     Dates: start: 20081101
  8. FLUDARABINE [Suspect]
     Active Substance: FLUDARABINE PHOSPHATE
     Dosage: UNK, QCY, DID NOT ALLOW CONTINUATION OF CHEMOIMMUNOTHERAPY AFTER THE 5TH CYCLE / DISCONTINUED PREMAT
     Route: 065
     Dates: start: 201402
  9. FLUDARABINE [Suspect]
     Active Substance: FLUDARABINE PHOSPHATE
     Dosage: 5 CYCLES, FCR REGIMEN
     Route: 065
     Dates: start: 200811
  10. BLEOMYCIN [Concomitant]
     Active Substance: BLEOMYCIN SULFATE
     Indication: Chylothorax
     Dosage: APPLIED TWICE
     Route: 034
  11. DEXAMETHASONE [Concomitant]
     Active Substance: DEXAMETHASONE
     Indication: Chylothorax
     Dosage: UNK
     Dates: start: 201706
  12. IDELALISIB [Concomitant]
     Active Substance: IDELALISIB
     Indication: Chylothorax
     Dosage: UNK
     Dates: start: 201603

REACTIONS (7)
  - Febrile neutropenia [Unknown]
  - Clostridium difficile colitis [Unknown]
  - Device related sepsis [Unknown]
  - Neutropenia [Unknown]
  - Malignant neoplasm progression [Unknown]
  - Chronic lymphocytic leukaemia [Unknown]
  - Therapy partial responder [Unknown]

NARRATIVE: CASE EVENT DATE: 20140101
